FAERS Safety Report 5905371-2 (Version None)
Quarter: 2008Q4

REPORT INFORMATION
  Report Type: 
  Country: None (occurrence: None)
  Receive Date: 20081001
  Receipt Date: 20080924
  Transmission Date: 20090506
  Serious: Yes (Other)
  Sender: FDA-Public Use
  Company Number: US-GENENTECH-268553

PATIENT

DRUGS (1)
  1. AVASTIN [Suspect]
     Indication: GLAUCOMA

REACTIONS (1)
  - CHOROIDAL DETACHMENT [None]
